FAERS Safety Report 9654071 (Version 1)
Quarter: 2013Q4

REPORT INFORMATION
  Report Type: Spontaneous
  Country: US (occurrence: None)
  Receive Date: 20131028
  Receipt Date: 20131028
  Transmission Date: 20140711
  Serious: Yes (Death, Other)
  Sender: FDA-Public Use
  Company Number: ADR-2013-01933

PATIENT
  Age: 61 Year
  Sex: Female

DRUGS (2)
  1. BACLOFEN [Suspect]
     Dosage: 119.88 MCG/DAY
  2. BUPIVACAINE [Suspect]
     Dosage: 17.982 MG/DAY

REACTIONS (3)
  - Pancreatic carcinoma [None]
  - Malignant neoplasm progression [None]
  - Condition aggravated [None]
